FAERS Safety Report 9858592 (Version 1)
Quarter: 2014Q1

REPORT INFORMATION
  Report Type: Spontaneous
  Country: US (occurrence: None)
  Receive Date: 20140130
  Receipt Date: 20140130
  Transmission Date: 20141002
  Serious: Yes (Hospitalization)
  Sender: FDA-Public Use
  Company Number: None

PATIENT
  Age: 95 Year
  Sex: Female
  Weight: 70 kg

DRUGS (11)
  1. RIVAROXABAN [Suspect]
     Indication: DEEP VEIN THROMBOSIS
     Route: 048
     Dates: start: 20120730, end: 20130810
  2. CLOPIDOGREL [Concomitant]
  3. ASPIRIN [Concomitant]
  4. ACETAMINOPHEN [Concomitant]
  5. ALBUTEROL [Concomitant]
  6. MAALOX [Concomitant]
  7. BRIMONIDINE [Concomitant]
  8. LATANAPROST [Concomitant]
  9. DOXAZOSIN [Concomitant]
  10. ESCITALOPRAM [Concomitant]
  11. FLUTICASONE [Concomitant]

REACTIONS (9)
  - Mental status changes [None]
  - Confusional state [None]
  - Hallucination [None]
  - Cerebral haemorrhage [None]
  - Cerebral arteriovenous malformation haemorrhagic [None]
  - Cerebral amyloid angiopathy [None]
  - Coagulopathy [None]
  - Hypertension [None]
  - Creatinine renal clearance decreased [None]
